FAERS Safety Report 4602329-0 (Version None)
Quarter: 2005Q2

REPORT INFORMATION
  Report Type: 
  Country: None (occurrence: None)
  Receive Date: 20050223
  Receipt Date: 20041203
  Transmission Date: 20051028
  Serious: No
  Sender: FDA-Public Use
  Company Number: 209136

PATIENT
  Age: 53 Year
  Sex: Male

DRUGS (1)
  1. RAPTIVA [Suspect]
     Indication: PSORIASIS
     Dosage: 1 VAIL, 1 WEEK, UNK
     Route: 065
     Dates: start: 20040301

REACTIONS (3)
  - ASTHENIA [None]
  - PSORIASIS [None]
  - WEIGHT DECREASED [None]
